FAERS Safety Report 17108583 (Version 1)
Quarter: 2019Q4

REPORT INFORMATION
  Report Type: Spontaneous
  Country: DK (occurrence: DK)
  Receive Date: 20191203
  Receipt Date: 20191203
  Transmission Date: 20200122
  Serious: Yes (Hospitalization)
  Sender: FDA-Public Use
  Company Number: NVSC2019DK051055

PATIENT
  Age: 75 Year
  Sex: Male

DRUGS (3)
  1. LOSARTAN. [Concomitant]
     Active Substance: LOSARTAN
     Indication: HYPERTENSION
     Dosage: 50 MG, QD
     Route: 048
     Dates: start: 20171028, end: 20171208
  2. ALLOPURINOL. [Concomitant]
     Active Substance: ALLOPURINOL
     Indication: GOUT
     Dosage: UNK
     Route: 048
     Dates: start: 20171018, end: 20171127
  3. GLIVEC [Suspect]
     Active Substance: IMATINIB MESYLATE
     Indication: CHRONIC MYELOID LEUKAEMIA
     Dosage: 400 MG, QD
     Route: 048
     Dates: start: 20171021, end: 20180106

REACTIONS (14)
  - Lip ulceration [Recovered/Resolved]
  - Hypersensitivity [Recovered/Resolved]
  - Skin ulcer [Recovered/Resolved]
  - Dizziness [Recovered/Resolved]
  - Oral discomfort [Recovered/Resolved]
  - Tongue ulceration [Recovered/Resolved]
  - Gingival ulceration [Recovered/Resolved]
  - Fall [Recovered/Resolved]
  - Diarrhoea [Recovered/Resolved]
  - Stevens-Johnson syndrome [Recovered/Resolved]
  - Pain of skin [Recovered/Resolved]
  - Pruritus [Recovered/Resolved]
  - Syncope [Recovered/Resolved]
  - Nausea [Recovered/Resolved]

NARRATIVE: CASE EVENT DATE: 201710
